FAERS Safety Report 6709125-9 (Version None)
Quarter: 2010Q2

REPORT INFORMATION
  Report Type: 
  Country: None (occurrence: None)
  Receive Date: 20100503
  Receipt Date: 20100503
  Transmission Date: 20101027
  Serious: Yes (Hospitalization)
  Sender: FDA-Public Use
  Company Number: None

PATIENT
  Age: 55 Year
  Sex: Male

DRUGS (2)
  1. ARIPIPRAZOLE [Suspect]
     Indication: SCHIZOAFFECTIVE DISORDER
     Dosage: 20 MG EVERY DAY PO
     Route: 048
     Dates: end: 20100321
  2. MIRTAZAPINE [Suspect]
     Indication: SCHIZOAFFECTIVE DISORDER
     Dosage: 45 MG HS PO
     Route: 048
     Dates: end: 20100321

REACTIONS (3)
  - DIABETIC KETOACIDOSIS [None]
  - LIPASE INCREASED [None]
  - WEIGHT INCREASED [None]
